FAERS Safety Report 9852516 (Version 1)
Quarter: 2014Q1

REPORT INFORMATION
  Report Type: Spontaneous
  Country: US (occurrence: None)
  Receive Date: 20140127
  Receipt Date: 20140127
  Transmission Date: 20141002
  Serious: No
  Sender: FDA-Public Use
  Company Number: 2013P1005076

PATIENT
  Age: 48 Year
  Sex: Female

DRUGS (2)
  1. INFUMORPH [Suspect]
     Indication: PAIN
     Dosage: 4.92 MG;QD;INTH
     Route: 037
  2. BUPIVACAINE [Suspect]
     Indication: PAIN
     Dosage: 2.26 MG; QD; INTH
     Route: 037

REACTIONS (4)
  - Medical device complication [None]
  - Device dislocation [None]
  - Seroma [None]
  - No adverse event [None]
